FAERS Safety Report 9444578 (Version 1)
Quarter: 2013Q3

REPORT INFORMATION
  Report Type: Spontaneous
  Country: US (occurrence: US)
  Receive Date: 20130807
  Receipt Date: 20130807
  Transmission Date: 20140515
  Serious: No
  Sender: FDA-Public Use
  Company Number: US-PFIZER INC-2013228007

PATIENT
  Age: 59 Year
  Sex: Female
  Weight: 75.28 kg

DRUGS (5)
  1. XELJANZ [Suspect]
     Indication: RHEUMATOID ARTHRITIS
     Dosage: 5 MG, TWICE A DAY
     Route: 048
  2. PREMARIN [Concomitant]
     Dosage: 0.45 MG
     Route: 048
  3. SYNTHROID [Concomitant]
     Dosage: 100 UG
     Route: 048
  4. RESTASIS [Concomitant]
     Dosage: 0.05 %
     Route: 047
  5. ATORVASTATIN [Concomitant]
     Dosage: 10 MG
     Route: 048

REACTIONS (2)
  - Nausea [Unknown]
  - Muscle spasms [Unknown]
